FAERS Safety Report 9771310 (Version 1)
Quarter: 2013Q4

REPORT INFORMATION
  Report Type: Spontaneous
  Country: IT (occurrence: IT)
  Receive Date: 20131218
  Receipt Date: 20131218
  Transmission Date: 20140711
  Serious: Yes (Other)
  Sender: FDA-Public Use
  Company Number: IT-MYLANLABS-2013S1027432

PATIENT
  Age: 59 Year
  Sex: Female

DRUGS (6)
  1. PACLITAXEL [Suspect]
     Indication: LUNG CANCER METASTATIC
     Dosage: CYCLIC
     Route: 042
     Dates: start: 20130723, end: 20130723
  2. RANIDIL [Concomitant]
     Indication: GASTROOESOPHAGEAL REFLUX PROPHYLAXIS
     Dates: start: 20130623, end: 20130723
  3. ZOFRAN [Concomitant]
     Indication: PROPHYLAXIS OF NAUSEA AND VOMITING
     Dates: start: 20130723, end: 20130723
  4. DEXAMETHASONE PHOSPHATE [Concomitant]
     Indication: PROPHYLAXIS OF NAUSEA AND VOMITING
     Dates: start: 20130723, end: 20130723
  5. TRIMETON /00072502/ [Concomitant]
     Indication: PREMEDICATION
     Dates: start: 20130723, end: 20130723
  6. PANTOPRAZOLE [Concomitant]
     Indication: GASTROOESOPHAGEAL REFLUX PROPHYLAXIS
     Dates: start: 20130715, end: 20131016

REACTIONS (5)
  - Bronchospasm [Recovered/Resolved]
  - Cyanosis [Recovered/Resolved]
  - Dyspnoea [Recovered/Resolved]
  - Hypertension [Recovered/Resolved]
  - Hypoxia [Recovered/Resolved]
